FAERS Safety Report 4645284-X (Version None)
Quarter: 2005Q2

REPORT INFORMATION
  Report Type: 
  Country: None (occurrence: None)
  Receive Date: 20050331
  Receipt Date: 20050204
  Transmission Date: 20051028
  Serious: No
  Sender: FDA-Public Use
  Company Number: 04P-163-0273420

PATIENT
  Age: 46 Year
  Sex: Female
  Weight: 113.6 kg

DRUGS (12)
  1. HUMIRA [Suspect]
     Indication: RHEUMATOID ARTHRITIS
     Dosage: 40 MG, 1 IN 2 WK, SUBCUTANEOUS, 4O MG 1 IN 10 D SUB CUTANIOUS
     Route: 058
     Dates: start: 20040716, end: 20040901
  2. HUMIRA [Suspect]
     Indication: RHEUMATOID ARTHRITIS
     Dosage: 40 MG, 1 IN 2 WK, SUBCUTANEOUS, 4O MG 1 IN 10 D SUB CUTANIOUS
     Route: 058
     Dates: start: 20040901
  3. FLUOXETINE HCL [Concomitant]
  4. WARFARIN SODIUM [Concomitant]
  5. PREDNISONE [Concomitant]
  6. SALSALATE [Concomitant]
  7. OXYCODONE HCL [Concomitant]
  8. CETIRIZINE HCL [Concomitant]
  9. METOPROLOL SUCCINATE [Concomitant]
  10. ESOMEPRAZOLE [Concomitant]
  11. BELLAMINES [Concomitant]
  12. BUPROPION HCL [Concomitant]

REACTIONS (5)
  - ANAEMIA [None]
  - ASTHENIA [None]
  - CONSTIPATION [None]
  - FATIGUE [None]
  - UPPER RESPIRATORY TRACT INFECTION [None]
